FAERS Safety Report 24700421 (Version 1)
Quarter: 2024Q4

REPORT INFORMATION
  Report Type: Spontaneous
  Country: JP (occurrence: JP)
  Receive Date: 20241205
  Receipt Date: 20241205
  Transmission Date: 20250114
  Serious: Yes (Death)
  Sender: Vantive US Healthcare
  Company Number: JP-VANTIVE-2024VAN021028

PATIENT
  Age: 55 Year
  Sex: Female

DRUGS (3)
  1. EXTRANEAL [Suspect]
     Active Substance: CALCIUM CHLORIDE\ICODEXTRIN\MAGNESIUM CHLORIDE\SODIUM CHLORIDE\SODIUM LACTATE
     Indication: Fluid retention
     Dosage: 1.5 LITERS
     Route: 033
     Dates: start: 20220615, end: 20240620
  2. REGUNEAL LCA [Suspect]
     Active Substance: CALCIUM CHLORIDE\DEXTROSE MONOHYDRATE\HYDROCHLORIC ACID\MAGNESIUM CHLORIDE\SODIUM BICARBONATE\SODIUM
     Indication: Fluid retention
     Dosage: 5 LITERS
     Route: 033
     Dates: start: 20220615, end: 20240620
  3. REGUNEAL LCA [Suspect]
     Active Substance: CALCIUM CHLORIDE\DEXTROSE MONOHYDRATE\HYDROCHLORIC ACID\MAGNESIUM CHLORIDE\SODIUM BICARBONATE\SODIUM
     Indication: Fluid retention
     Dosage: 2 LITERS
     Route: 033
     Dates: start: 20240315, end: 20240620

REACTIONS (1)
  - Cardiac disorder [Fatal]

NARRATIVE: CASE EVENT DATE: 20221012
